FAERS Safety Report 20832613 (Version 1)
Quarter: 2022Q2

REPORT INFORMATION
  Report Type: 
  Country: None (occurrence: None)
  Receive Date: 20220516
  Receipt Date: 20220516
  Transmission Date: 20220720
  Serious: No
  Sender: FDA-Public Use
  Company Number: TW-ROCHE-3096356

PATIENT

DRUGS (7)
  1. CAPECITABINE [Suspect]
     Active Substance: CAPECITABINE
     Dosage: ADMINISTERED, INCLUDING CAPECITABINE FOR 6 MONTHS AND THEN COMBINED OXALIPLATIN AND FLUOROURACIL FOR
  2. BEVACIZUMAB [Suspect]
     Active Substance: BEVACIZUMAB
     Dosage: BEVACIZUMAB (600 MG, I.V. INFUSION IN 100 ML OF 0.9% NACL OVER 90 MIN, DAY 1)
  3. PACLITAXEL [Suspect]
     Active Substance: PACLITAXEL
     Dosage: PACLITAXEL (175MG/M2, INTRAVENOUS [I.V.] INFUSION IN 500ML OF 5% GLUCOSE OVER 180MIN
  4. CARBOPLATIN [Suspect]
     Active Substance: CARBOPLATIN
     Dosage: AREA UNDER THE FREE CARBOPLATIN PLASMA CONCENTRATION VERSUS TIME CURVE [AUC] 5, I.V. INFUSION IN 250
  5. IRINOTECAN [Suspect]
     Active Substance: IRINOTECAN
     Dosage: IRINOTECAN (150 MG/M2, I.V. INFUSION IN 250 ML OF 0.9% NACL OVER 90 MIN)
  6. OXALIPLATIN [Suspect]
     Active Substance: OXALIPLATIN
     Dosage: OXALIPLATIN (85 MG/M2, I.V. INFUSION IN 250 ML OF 5% GLUCOSE OVER 120 MIN)
  7. FLUOROURACIL [Suspect]
     Active Substance: FLUOROURACIL
     Dosage: FLUOROURACIL (2400 MG/M2, I.V. INFUSION IN 500 ML OF 0.9% NACL OVER 46 H)

REACTIONS (1)
  - Disease progression [None]
